FAERS Safety Report 9801653 (Version 2)
Quarter: 2014Q1

REPORT INFORMATION
  Report Type: Report from Study
  Country: GB (occurrence: GB)
  Receive Date: 20140107
  Receipt Date: 20140107
  Transmission Date: 20141002
  Serious: Yes (Hospitalization)
  Sender: FDA-Public Use
  Company Number: GB-BRISTOL-MYERS SQUIBB COMPANY-16120388

PATIENT
  Age: 44 Year
  Sex: Female

DRUGS (5)
  1. IPILIMUMAB [Suspect]
     Indication: MALIGNANT MELANOMA
     Dosage: C4: 750 MG?C5: 740 MG
     Route: 042
     Dates: start: 20110506
  2. COD LIVER OIL [Concomitant]
     Dosage: CAPSULES
     Dates: start: 20110210
  3. VITAMIN B [Concomitant]
     Dosage: TABLET
  4. METROGEL [Concomitant]
     Dates: start: 20110702
  5. BETAMETHASONE [Concomitant]
     Indication: ECZEMA
     Route: 061
     Dates: start: 20110517

REACTIONS (3)
  - Gastroenteritis [Recovered/Resolved]
  - Diarrhoea [Recovered/Resolved]
  - Vomiting [Recovered/Resolved]
